FAERS Safety Report 6253363-9 (Version None)
Quarter: 2009Q3

REPORT INFORMATION
  Report Type: 
  Country: None (occurrence: None)
  Receive Date: 20090701
  Receipt Date: 20090626
  Transmission Date: 20100115
  Serious: Yes (Death)
  Sender: FDA-Public Use
  Company Number: PHEH2009US06813

PATIENT
  Sex: Male

DRUGS (2)
  1. TASIGNA [Suspect]
     Indication: LYMPHATIC DISORDER
     Dosage: 400 MG, BID
     Route: 048
     Dates: start: 20080919
  2. GLEEVEC [Suspect]
     Indication: LYMPHATIC DISORDER
     Dosage: 400 MG, QD
     Route: 048
     Dates: start: 20080822

REACTIONS (1)
  - DEATH [None]
